FAERS Safety Report 7671270-1 (Version None)
Quarter: 2011Q3

REPORT INFORMATION
  Report Type: 
  Country: None (occurrence: None)
  Receive Date: 20110809
  Receipt Date: 20110802
  Transmission Date: 20111222
  Serious: Yes (Hospitalization)
  Sender: FDA-Public Use
  Company Number: KR-SANOFI-AVENTIS-2011SA044095

PATIENT
  Age: 85 Year
  Sex: Male
  Weight: 72 kg

DRUGS (12)
  1. FUROSEMIDE [Concomitant]
  2. REPAGLINIDE [Concomitant]
  3. INSULIN [Concomitant]
  4. DILTIAZEM [Concomitant]
  5. DIGOXIN [Concomitant]
  6. DRONEDARONE [Suspect]
     Route: 048
     Dates: end: 20110513
  7. DRONEDARONE [Suspect]
     Indication: ATRIAL FIBRILLATION
     Route: 048
     Dates: start: 20110103, end: 20110106
  8. VALSARTAN [Concomitant]
  9. BISOPROLOL FUMARATE [Concomitant]
  10. WARFARIN SODIUM [Concomitant]
  11. DRONEDARONE [Suspect]
     Route: 048
  12. ATORVASTATIN [Concomitant]

REACTIONS (3)
  - PNEUMONIA [None]
  - HEPATIC CONGESTION [None]
  - RENAL FAILURE CHRONIC [None]
